FAERS Safety Report 10051202 (Version 1)
Quarter: 2014Q2

REPORT INFORMATION
  Report Type: Spontaneous
  Country: MX (occurrence: MX)
  Receive Date: 20140401
  Receipt Date: 20140401
  Transmission Date: 20141212
  Serious: Yes (Death)
  Sender: FDA-Public Use
  Company Number: MX-PFIZER INC-2014091483

PATIENT
  Age: 86 Year
  Sex: Female

DRUGS (1)
  1. EFEXOR [Suspect]
     Dosage: UNK

REACTIONS (1)
  - Myocardial infarction [Fatal]
